FAERS Safety Report 21766627 (Version 1)
Quarter: 2022Q4

REPORT INFORMATION
  Report Type: Report from Study
  Country: ES (occurrence: ES)
  Receive Date: 20221222
  Receipt Date: 20221222
  Transmission Date: 20230113
  Serious: Yes (Other)
  Sender: FDA-Public Use
  Company Number: ES-PFIZER INC-202201378581

PATIENT
  Age: 64 Year

DRUGS (4)
  1. CARBOPLATIN [Suspect]
     Active Substance: CARBOPLATIN
     Indication: Squamous cell carcinoma of head and neck
     Dosage: INITIAL DOSE AUC 4, 300 MG/D (MEAN DOSE RECEIVED 212 MG/M2), 6 CYCLES
  2. PACLITAXEL [Suspect]
     Active Substance: PACLITAXEL
     Indication: Squamous cell carcinoma of head and neck
     Dosage: INITIAL DOSE 150 MG/M2 (150 MG/D), MEAN DOSE RECEIVED 150, MG/M2, 6 CYCLES
  3. PEMBROLIZUMAB [Suspect]
     Active Substance: PEMBROLIZUMAB
     Indication: Squamous cell carcinoma of head and neck
     Dosage: 200 MG/M2, 6 CYCLES
     Route: 042
  4. PEMBROLIZUMAB [Suspect]
     Active Substance: PEMBROLIZUMAB
     Dosage: 200 MG/M2, MAINTENANCE, 1 CYCLE
     Route: 042

REACTIONS (2)
  - Thrombocytopenia [Unknown]
  - Hypomagnesaemia [Unknown]
